FAERS Safety Report 22243635 (Version 1)
Quarter: 2023Q2

REPORT INFORMATION
  Report Type: Spontaneous
  Country: US (occurrence: US)
  Receive Date: 20230424
  Receipt Date: 20230424
  Transmission Date: 20230722
  Serious: No
  Sender: FDA-Public Use
  Company Number: US-ABBVIE-4716904

PATIENT
  Age: 46 Year
  Sex: Female

DRUGS (1)
  1. SYNTHROID [Suspect]
     Active Substance: LEVOTHYROXINE SODIUM
     Indication: Hypothyroidism
     Dosage: FORM STRENGTH: 25 MILLIGRAM
     Route: 048
     Dates: start: 20230320, end: 20230401

REACTIONS (5)
  - Hypersensitivity [Recovered/Resolved]
  - Seasonal allergy [Recovered/Resolved]
  - Throat irritation [Recovered/Resolved]
  - Rhinorrhoea [Recovered/Resolved]
  - Sneezing [Recovered/Resolved]

NARRATIVE: CASE EVENT DATE: 20230320
